FAERS Safety Report 9694169 (Version 1)
Quarter: 2013Q4

REPORT INFORMATION
  Report Type: Spontaneous
  Country: US (occurrence: US)
  Receive Date: 20131118
  Receipt Date: 20131118
  Transmission Date: 20140711
  Serious: Yes (Other)
  Sender: FDA-Public Use
  Company Number: US-PFIZER INC-2013328557

PATIENT
  Sex: Female

DRUGS (2)
  1. LYRICA [Suspect]
     Dosage: 275 MG, 1X/DAY
     Route: 048
     Dates: end: 20131110
  2. LYRICA [Suspect]
     Dosage: 300 MG, 2X/DAY
     Route: 048
     Dates: start: 20131110

REACTIONS (7)
  - Central pain syndrome [Unknown]
  - Muscle spasms [Unknown]
  - Somnolence [Unknown]
  - Pain [Unknown]
  - Discomfort [Unknown]
  - Depressed mood [Unknown]
  - Drug ineffective [Unknown]
